FAERS Safety Report 17611146 (Version 1)
Quarter: 2020Q2

REPORT INFORMATION
  Report Type: Report from Study
  Country: US (occurrence: US)
  Receive Date: 20200401
  Receipt Date: 20200401
  Transmission Date: 20200713
  Serious: Yes (Hospitalization)
  Sender: FDA-Public Use
  Company Number: US-EISAI MEDICAL RESEARCH-EC-2020-070485

PATIENT
  Age: 64 Year
  Sex: Female

DRUGS (25)
  1. VENTOLIN HFA [Concomitant]
     Active Substance: ALBUTEROL SULFATE
  2. PREGABALIN. [Concomitant]
     Active Substance: PREGABALIN
  3. ASPERCREME W/ LIDOCAINE [Concomitant]
  4. HUMALOG [Concomitant]
     Active Substance: INSULIN LISPRO
  5. DULOXETINE. [Concomitant]
     Active Substance: DULOXETINE
  6. MELATONIN [Concomitant]
     Active Substance: MELATONIN
  7. DEEP BLUE GEL [Concomitant]
  8. OZEMPIC [Concomitant]
     Active Substance: SEMAGLUTIDE
  9. MULTIVITAMINS [Concomitant]
     Active Substance: VITAMINS
  10. EUTHYROX [Concomitant]
     Active Substance: LEVOTHYROXINE SODIUM
  11. CALCIUM-MAGNESIUM-ZINC [Concomitant]
  12. ASPIRIN. [Concomitant]
     Active Substance: ASPIRIN
  13. LOTREL [Concomitant]
     Active Substance: AMLODIPINE BESYLATE\BENAZEPRIL HYDROCHLORIDE
  14. METFORMIN ER [Concomitant]
     Active Substance: METFORMIN HYDROCHLORIDE
  15. SYSTANE (HYPROMELLOSE 2910 (4000 MPA.S)) [Concomitant]
     Active Substance: HYPROMELLOSE 2910 (4000 MPA.S)
  16. BASAGLAR KWIKPEN [Concomitant]
     Active Substance: INSULIN GLARGINE
  17. ATORVASTATIN [Concomitant]
     Active Substance: ATORVASTATIN
  18. MIRAPEX [Concomitant]
     Active Substance: PRAMIPEXOLE DIHYDROCHLORIDE
  19. KEYTRUDA [Concomitant]
     Active Substance: PEMBROLIZUMAB
  20. VITAMIN D3 [Concomitant]
     Active Substance: CHOLECALCIFEROL
  21. OCUVITE LUTEIN-ZEAXANT [Concomitant]
  22. LENVIMA [Suspect]
     Active Substance: LENVATINIB
     Indication: ENDOMETRIAL CANCER
     Route: 048
     Dates: start: 20200212, end: 2020
  23. TOPIRAMATE. [Concomitant]
     Active Substance: TOPIRAMATE
  24. JARDIANCE [Concomitant]
     Active Substance: EMPAGLIFLOZIN
  25. PRAMIPEXOLE DIHYDROCHL [Concomitant]

REACTIONS (14)
  - Toe amputation [Unknown]
  - Stomatitis [Recovering/Resolving]
  - Arthralgia [Unknown]
  - Alopecia [Recovering/Resolving]
  - Dyspnoea [Unknown]
  - Vomiting [Unknown]
  - Nausea [Recovering/Resolving]
  - Decreased appetite [Unknown]
  - Weight decreased [Unknown]
  - Fatigue [Unknown]
  - Myalgia [Unknown]
  - Hypertension [Unknown]
  - Constipation [Unknown]
  - Dysphonia [Unknown]

NARRATIVE: CASE EVENT DATE: 202002
